FAERS Safety Report 4485927-7 (Version None)
Quarter: 2004Q4

REPORT INFORMATION
  Report Type: 
  Country: None (occurrence: None)
  Receive Date: 20041026
  Receipt Date: 20041011
  Transmission Date: 20050328
  Serious: Yes (Hospitalization, Other)
  Sender: FDA-Public Use
  Company Number: 2004S1003034

PATIENT
  Age: 61 Year
  Sex: Female
  Weight: 61.6892 kg

DRUGS (4)
  1. ALPRAZOLAM [Suspect]
     Indication: ANXIETY
     Dosage: 0.5 MG, PRN, ORAL
     Route: 048
     Dates: start: 20030201, end: 20040801
  2. ALPRAZOLAM [Suspect]
     Indication: PANIC ATTACK
     Dosage: 0.5 MG, PRN, ORAL
     Route: 048
     Dates: start: 20030201, end: 20040801
  3. PROPRANOLOL [Concomitant]
  4. MINOXIDIL [Concomitant]

REACTIONS (3)
  - ANXIETY [None]
  - BLOOD PRESSURE FLUCTUATION [None]
  - DRUG DEPENDENCE [None]
